FAERS Safety Report 9274694 (Version 1)
Quarter: 2013Q2

REPORT INFORMATION
  Report Type: Spontaneous
  Country: US (occurrence: None)
  Receive Date: 20130430
  Receipt Date: 20130430
  Transmission Date: 20140414
  Serious: No
  Sender: FDA-Public Use
  Company Number: None

PATIENT
  Age: 57 Year
  Sex: Female

DRUGS (2)
  1. PEGASYS [Suspect]
     Indication: HEPATITIS C
     Route: 058
     Dates: start: 20130304, end: 20130429
  2. INCIVEK [Suspect]
     Dosage: 2
     Route: 048
     Dates: start: 20130304, end: 20130429

REACTIONS (2)
  - Pruritus generalised [None]
  - No therapeutic response [None]
